FAERS Safety Report 7416202-6 (Version None)
Quarter: 2011Q2

REPORT INFORMATION
  Report Type: 
  Country: None (occurrence: None)
  Receive Date: 20110414
  Receipt Date: 20101221
  Transmission Date: 20111010
  Serious: Yes (Hospitalization)
  Sender: FDA-Public Use
  Company Number: JP-BAYER-2011-021457

PATIENT
  Age: 66 Year
  Sex: Male
  Weight: 70 kg

DRUGS (12)
  1. MOSAPRIDE [Concomitant]
     Indication: GASTRITIS
     Dosage: 7.5 MG (2.5 MG, 3 IN 1 D)
  2. LOPERAMIDE HYDROCHLORIDE [Concomitant]
     Dosage: 2 MG, (2 MG, 2 IN 1 D)
     Dates: start: 20101019
  3. SORAFENIB (RAF KINASE INHIBITOR) [Suspect]
     Indication: HEPATIC NEOPLASM MALIGNANT
     Dosage: 800 MG (400 MG, 2 IN 1 D)
     Route: 048
     Dates: start: 20101004, end: 20101130
  4. OMEPRAZOLE [Concomitant]
     Indication: GASTRITIS
     Dosage: 40 MG (20MG 2 IN 1 D)
  5. FUROSEMIDE [Concomitant]
     Indication: ASCITES
     Dosage: 20 MG, (20 MG, 1 IN 1D)
     Dates: start: 20101205
  6. PROHEPARUM [Concomitant]
     Indication: HEPATIC CIRRHOSIS
     Dosage: 3 TABLET (1 TABLET, 3 IN 1 D)
  7. MUCOPOLYSACCHARIDE POLYSULFURIC ACID ESTER [Concomitant]
     Indication: PROPHYLAXIS
     Dosage: UNK UNK, PRN
     Route: 061
     Dates: start: 20101012
  8. SPIRONOLACTONE [Concomitant]
     Indication: ASCITES
     Dosage: 50 MG, (50 MG, 1 IN 1 D)
     Dates: start: 20101205
  9. ALBUMIN TANNATE [Concomitant]
     Dosage: 3 GM (1 GM, 3 IN 1 D)
     Dates: start: 20101016, end: 20101019
  10. GLYCYRON [Concomitant]
     Indication: HEPATIC CIRRHOSIS
     Dosage: 6 TABLETS (2 TABLETS, 3 IN 1 D)
  11. ALBUMIN TANNATE [Concomitant]
     Indication: DIARRHOEA
     Dosage: 3 GM (1 GM, 3 IN 1 D)
     Dates: start: 20100901, end: 20101011
  12. LOPERAMIDE HYDROCHLORIDE [Concomitant]
     Indication: DIARRHOEA
     Dosage: 2 MG, (2 MG, 2 IN 1 D)
     Dates: start: 20101012, end: 20101015

REACTIONS (1)
  - ASCITES [None]
